FAERS Safety Report 16838856 (Version 1)
Quarter: 2019Q3

REPORT INFORMATION
  Report Type: Spontaneous
  Country: US (occurrence: US)
  Receive Date: 20190731
  Receipt Date: 20190731
  Transmission Date: 20191005
  Serious: No
  Sender: FDA-Public Use
  Company Number: None

PATIENT
  Age: 42 Year
  Sex: Female

DRUGS (1)
  1. CYCLOSPORINE MODIFIED 100MG MAYNE PHARMA [Suspect]
     Active Substance: CYCLOSPORINE
     Indication: PRODUCT USED FOR UNKNOWN INDICATION
     Route: 048
     Dates: start: 20190626

REACTIONS (5)
  - Gingival hypertrophy [None]
  - Oedema [None]
  - Candida infection [None]
  - Weight increased [None]
  - Urinary incontinence [None]

NARRATIVE: CASE EVENT DATE: 20190701
